FAERS Safety Report 11292240 (Version 1)
Quarter: 2015Q3

REPORT INFORMATION
  Report Type: Spontaneous
  Country: US (occurrence: None)
  Receive Date: 20150721
  Receipt Date: 20150721
  Transmission Date: 20151125
  Serious: Yes (Hospitalization)
  Sender: FDA-Public Use
  Company Number: None

PATIENT
  Age: 89 Year
  Sex: Male

DRUGS (1)
  1. IRON SUCROSE [Suspect]
     Active Substance: IRON SUCROSE
     Indication: ANAEMIA
     Route: 042
     Dates: start: 20100616, end: 20100616

REACTIONS (4)
  - Drug hypersensitivity [None]
  - Nausea [None]
  - Hypotension [None]
  - Abdominal pain upper [None]

NARRATIVE: CASE EVENT DATE: 20100616
